FAERS Safety Report 7640745-3 (Version None)
Quarter: 2011Q3

REPORT INFORMATION
  Report Type: 
  Country: None (occurrence: None)
  Receive Date: 20110728
  Receipt Date: 20110715
  Transmission Date: 20111222
  Serious: Yes (Hospitalization, Other)
  Sender: FDA-Public Use
  Company Number: US-ELI_LILLY_AND_COMPANY-US201105003414

PATIENT
  Sex: Female
  Weight: 56.68 kg

DRUGS (1)
  1. FORTEO [Suspect]

REACTIONS (13)
  - CALCIFICATION OF MUSCLE [None]
  - NECROSIS [None]
  - HEADACHE [None]
  - BLINDNESS UNILATERAL [None]
  - FAMILY STRESS [None]
  - MALAISE [None]
  - WOUND TREATMENT [None]
  - FIBROSIS [None]
  - IMPAIRED HEALING [None]
  - SCAR [None]
  - STRESS [None]
  - BLOOD PRESSURE FLUCTUATION [None]
  - ANXIETY [None]
